FAERS Safety Report 23446195 (Version 1)
Quarter: 2024Q1

REPORT INFORMATION
  Report Type: Spontaneous
  Country: SK (occurrence: None)
  Receive Date: 20240126
  Receipt Date: 20240126
  Transmission Date: 20240410
  Serious: Yes (Hospitalization, Other)
  Sender: FDA-Public Use
  Company Number: 2024A018083

PATIENT
  Age: 74 Year
  Sex: Male

DRUGS (3)
  1. QUETIAPINE FUMARATE [Suspect]
     Active Substance: QUETIAPINE FUMARATE
     Indication: Mental disorder
     Dosage: 1-0-1
     Route: 048
     Dates: start: 20231124, end: 20231208
  2. CINOLAZEPAM [Suspect]
     Active Substance: CINOLAZEPAM
     Indication: Mental disorder
     Route: 048
  3. DULOXETINE HYDROCHLORIDE [Suspect]
     Active Substance: DULOXETINE HYDROCHLORIDE
     Indication: Mental disorder
     Dosage: 1-0-0
     Route: 048
     Dates: start: 20231124, end: 20231208

REACTIONS (1)
  - Erythema multiforme [Recovered/Resolved]
